FAERS Safety Report 4883679-X (Version None)
Quarter: 2006Q1

REPORT INFORMATION
  Report Type: 
  Country: None (occurrence: None)
  Receive Date: 20060113
  Receipt Date: 20060104
  Transmission Date: 20060701
  Serious: Yes (Congenital Anomaly)
  Sender: FDA-Public Use
  Company Number: 2006004100

PATIENT
  Sex: Male

DRUGS (4)
  1. VIRACEPT [Suspect]
     Indication: HIV TEST POSITIVE
     Dosage: 2500 MG ORAL
     Route: 064
     Dates: start: 20020401
  2. RETROVIR [Suspect]
     Indication: HIV TEST POSITIVE
     Dosage: 40 MG ORAL
     Route: 064
     Dates: start: 20050502
  3. EPIVIR [Suspect]
     Indication: HIV TEST POSITIVE
     Dosage: 150 MG ORAL
     Route: 064
     Dates: start: 20020401
  4. ZERIT [Suspect]
     Indication: HIV TEST POSITIVE
     Dosage: 60 MG ORAL
     Route: 064
     Dates: start: 20020401, end: 20020501

REACTIONS (3)
  - ANAEMIA NEONATAL [None]
  - DRUG EXPOSURE DURING PREGNANCY [None]
  - PATENT DUCTUS ARTERIOSUS [None]
